FAERS Safety Report 16113626 (Version 2)
Quarter: 2021Q2

REPORT INFORMATION
  Report Type: Spontaneous
  Country: US (occurrence: US)
  Receive Date: 20190325
  Receipt Date: 20210413
  Transmission Date: 20210716
  Serious: No
  Sender: FDA-Public Use
  Company Number: US-ALLERGAN-1846810US

PATIENT
  Age: 72 Year
  Sex: Female

DRUGS (1)
  1. LATISSE [Suspect]
     Active Substance: BIMATOPROST
     Indication: PRODUCT USED FOR UNKNOWN INDICATION
     Dosage: EVERY NIGHT WITH A NEW BRUSH
     Route: 061
     Dates: start: 20180923

REACTIONS (2)
  - Erythema of eyelid [Unknown]
  - Eye irritation [Unknown]

NARRATIVE: CASE EVENT DATE: 20180925
